FAERS Safety Report 4855086-7 (Version None)
Quarter: 2005Q4

REPORT INFORMATION
  Report Type: 
  Country: None (occurrence: None)
  Receive Date: 20051215
  Receipt Date: 20051205
  Transmission Date: 20060501
  Serious: Yes (Hospitalization)
  Sender: FDA-Public Use
  Company Number: US-ABBOTT-05P-163-0319437-00

PATIENT
  Age: 35 Month

DRUGS (1)
  1. FERROUS SULFATE DROPS [Suspect]
     Indication: DRUG USE FOR UNKNOWN INDICATION
     Dosage: 75 MG/0.6 ML

REACTIONS (3)
  - ABDOMINAL PAIN [None]
  - OVERDOSE [None]
  - VOMITING [None]
